FAERS Safety Report 4360163-3 (Version None)
Quarter: 2004Q2

REPORT INFORMATION
  Report Type: 
  Country: None (occurrence: None)
  Receive Date: 20040519
  Receipt Date: 20030815
  Transmission Date: 20050107
  Serious: Yes (Other)
  Sender: FDA-Public Use
  Company Number: PHBS2003FR08779

PATIENT
  Age: 54 Year
  Sex: Female

DRUGS (2)
  1. PARLODEL [Suspect]
     Indication: PARKINSON'S DISEASE
     Dosage: 40 MG/DAY
     Route: 048
     Dates: start: 19970101
  2. MODOPAR [Suspect]
     Dosage: 125 MG, TID
     Dates: start: 19990101

REACTIONS (1)
  - PATHOLOGICAL GAMBLING [None]
